FAERS Safety Report 21193105 (Version 1)
Quarter: 2022Q3

REPORT INFORMATION
  Report Type: Report from Study
  Country: US (occurrence: US)
  Receive Date: 20220810
  Receipt Date: 20220810
  Transmission Date: 20221027
  Serious: Yes (Hospitalization, Other)
  Sender: FDA-Public Use
  Company Number: US-CELGENE-USA-20210904003

PATIENT
  Age: 62 Year
  Sex: Female

DRUGS (1)
  1. BREYANZI [Suspect]
     Active Substance: LISOCABTAGENE MARALEUCEL
     Indication: B-cell lymphoma
     Dosage: FREQUENCY TEXT: ONCE
     Route: 042
     Dates: start: 20210901, end: 20210901

REACTIONS (4)
  - Visual agnosia [Recovering/Resolving]
  - Gait inability [Unknown]
  - Aphasia [Recovering/Resolving]
  - Dysstasia [Unknown]

NARRATIVE: CASE EVENT DATE: 20210907
